FAERS Safety Report 4847902-X (Version None)
Quarter: 2005Q4

REPORT INFORMATION
  Report Type: 
  Country: None (occurrence: None)
  Receive Date: 20051206
  Receipt Date: 20051206
  Transmission Date: 20060501
  Serious: Yes (Other)
  Sender: FDA-Public Use
  Company Number: None

PATIENT
  Sex: Female
  Weight: 141.0687 kg

DRUGS (2)
  1. PAXIL [Suspect]
     Indication: DEPRESSION
     Dosage: 20MG   EVERY 3 DAYS   PO
     Route: 048
     Dates: start: 20001201, end: 20051205
  2. PAXIL [Suspect]
     Indication: SOCIAL PHOBIA
     Dosage: 20MG   EVERY 3 DAYS   PO
     Route: 048
     Dates: start: 20001201, end: 20051205

REACTIONS (4)
  - DIZZINESS [None]
  - HEADACHE [None]
  - SKIN WARM [None]
  - TREMOR [None]
